APPROVED DRUG PRODUCT: TAVIST-1
Active Ingredient: CLEMASTINE FUMARATE
Strength: 1.34MG **Federal Register determination that product was not discontinued or withdrawn for safety or effectiveness reasons**
Dosage Form/Route: TABLET;ORAL
Application: N020925 | Product #001
Applicant: HALEON US HOLDINGS LLC
Approved: Aug 21, 1992 | RLD: Yes | RS: No | Type: DISCN